FAERS Safety Report 15001596 (Version 1)
Quarter: 2018Q2

REPORT INFORMATION
  Report Type: Spontaneous
  Country: DE (occurrence: DE)
  Receive Date: 20180612
  Receipt Date: 20180612
  Transmission Date: 20180711
  Serious: Yes (Death)
  Sender: FDA-Public Use
  Company Number: DE-PFIZER INC-2018232758

PATIENT
  Sex: Male

DRUGS (1)
  1. ZAVEDOS [Suspect]
     Active Substance: IDARUBICIN
     Dosage: 10 MG, UNK
     Route: 048

REACTIONS (2)
  - Death [Fatal]
  - Expired product administered [Unknown]
